FAERS Safety Report 18195526 (Version 1)
Quarter: 2020Q3

REPORT INFORMATION
  Report Type: Report from Study
  Country: US (occurrence: US)
  Receive Date: 20200825
  Receipt Date: 20200825
  Transmission Date: 20201103
  Serious: Yes (Hospitalization, Other)
  Sender: FDA-Public Use
  Company Number: US-ACTELION-A-US2018-181747

PATIENT
  Age: 72 Year
  Sex: Female

DRUGS (1)
  1. OPSUMIT [Suspect]
     Active Substance: MACITENTAN
     Indication: PULMONARY HYPERTENSION
     Dosage: 10 MG, UNK
     Route: 048
     Dates: start: 20180905

REACTIONS (15)
  - Fall [Unknown]
  - Respiratory failure [Unknown]
  - Acute respiratory failure [Recovered/Resolved]
  - Cardiac failure congestive [Recovered/Resolved]
  - Oral herpes [Recovered/Resolved]
  - Anaemia [Unknown]
  - Condition aggravated [Recovered/Resolved]
  - Pulmonary oedema [Unknown]
  - Brain natriuretic peptide increased [Unknown]
  - Cystitis [Recovered/Resolved]
  - Pulmonary hypertension [Unknown]
  - Hypotension [Unknown]
  - Dyspnoea [Recovered/Resolved]
  - Weight increased [Unknown]
  - Blood iron decreased [Unknown]

NARRATIVE: CASE EVENT DATE: 201811
